FAERS Safety Report 20761982 (Version 1)
Quarter: 2022Q2

REPORT INFORMATION
  Report Type: Spontaneous
  Country: JP (occurrence: JP)
  Receive Date: 20220428
  Receipt Date: 20220428
  Transmission Date: 20220721
  Serious: Yes (Other)
  Sender: FDA-Public Use
  Company Number: None

PATIENT
  Age: 7 Decade
  Sex: Male

DRUGS (11)
  1. PREDNISOLONE [Suspect]
     Active Substance: PREDNISOLONE
     Indication: Angioimmunoblastic T-cell lymphoma
     Dosage: 30 MILLIGRAM/SQ. METER, THP-COP REGIMEN; FROM DAY 1 TO DAY 5; AT MONTHLY INTERVALS
     Route: 065
  2. CYCLOSPORINE [Suspect]
     Active Substance: CYCLOSPORINE
     Indication: Aplastic anaemia
     Dosage: 6 MILLIGRAM/KILOGRAM, QD, FOR 18 MONTHS
     Route: 065
  3. CYCLOPHOSPHAMIDE [Suspect]
     Active Substance: CYCLOPHOSPHAMIDE
     Indication: Angioimmunoblastic T-cell lymphoma
     Dosage: 500 MILLIGRAM/SQ. METER, THP-COP REGIMEN; AT MONTHLY INTERVALS
     Route: 065
  4. CYCLOPHOSPHAMIDE [Suspect]
     Active Substance: CYCLOPHOSPHAMIDE
     Dosage: DOSE OF CYCLOPHOSPHAMIDE WAS REDUCED TO 75% DUE TO KIDNEY DYSFUNCTION
     Route: 065
  5. PIRARUBICIN [Suspect]
     Active Substance: PIRARUBICIN
     Indication: Angioimmunoblastic T-cell lymphoma
     Dosage: 30 MILLIGRAM/SQ. METER, THP-COP REGIMEN; AT MONTHLY INTERVALS
     Route: 065
  6. VINCRISTINE [Suspect]
     Active Substance: VINCRISTINE
     Indication: Angioimmunoblastic T-cell lymphoma
     Dosage: 1 MILLIGRAM/SQ. METER, THP-COP REGIMEN; ON DAY 1; AT MONTHLY INTERVALS
     Route: 065
  7. ELTROMBOPAG [Suspect]
     Active Substance: ELTROMBOPAG
     Indication: Aplastic anaemia
     Dosage: 100 MILLIGRAM, QD, FOR 15 MONTHS
     Route: 065
  8. METHENOLONE ENANTHATE [Suspect]
     Active Substance: METHENOLONE ENANTHATE
     Indication: Aplastic anaemia
     Dosage: 20 MILLIGRAM, QD, FOR 3 MONTHS
     Route: 065
  9. MITOXANTRONE [Suspect]
     Active Substance: MITOXANTRONE HYDROCHLORIDE
     Indication: Acute myeloid leukaemia
     Dosage: 6 MILLIGRAM/SQ. METER, QD, FOR 6 DAYS
     Route: 065
  10. ETOPOSIDE [Suspect]
     Active Substance: ETOPOSIDE
     Indication: Acute myeloid leukaemia
     Dosage: 40 MILLIGRAM/SQ. METER, QD, FOR 6 DAYS; DOSE OF ETOPOSIDE WAS REDUCED TO 50% DUE TO LIVER DYSFUNCTIO
     Route: 065
  11. CYTARABINE [Suspect]
     Active Substance: CYTARABINE
     Indication: Acute myeloid leukaemia
     Dosage: 1 MILLIGRAM/SQ. METER, QD, FOR 6 DAYS
     Route: 065

REACTIONS (4)
  - Myelosuppression [Unknown]
  - Aplastic anaemia [Recovering/Resolving]
  - Myelodysplastic syndrome [Not Recovered/Not Resolved]
  - Disease progression [Not Recovered/Not Resolved]
